FAERS Safety Report 24269662 (Version 1)
Quarter: 2024Q3

REPORT INFORMATION
  Report Type: Spontaneous
  Country: US (occurrence: None)
  Receive Date: 20240830
  Receipt Date: 20240830
  Transmission Date: 20241017
  Serious: Yes (Other)
  Sender: Public
  Company Number: None

PATIENT
  Age: 51 Year
  Sex: Male
  Weight: 95.25 kg

DRUGS (3)
  1. PANTOPRAZOLE SODIUM [Suspect]
     Active Substance: PANTOPRAZOLE SODIUM
     Indication: Oesophagitis
     Dosage: 1 TABLET TWICE A DAY TAKEN BY MOUTH
     Route: 048
     Dates: start: 20240726, end: 20240813
  2. PANTOPRAZOLE SODIUM [Suspect]
     Active Substance: PANTOPRAZOLE SODIUM
     Indication: Gastrooesophageal reflux disease
  3. HEARING NIDS [Concomitant]

REACTIONS (12)
  - Dyspepsia [None]
  - Abdominal pain upper [None]
  - Abnormal faeces [None]
  - Therapy change [None]
  - Arthralgia [None]
  - Arthralgia [None]
  - Rash pruritic [None]
  - Rash [None]
  - Rash erythematous [None]
  - Therapy cessation [None]
  - Barrett^s oesophagus [None]
  - Oesophagitis [None]

NARRATIVE: CASE EVENT DATE: 20240731
